FAERS Safety Report 7398974-2 (Version None)
Quarter: 2011Q2

REPORT INFORMATION
  Report Type: 
  Country: None (occurrence: None)
  Receive Date: 20110407
  Receipt Date: 20110330
  Transmission Date: 20111010
  Serious: Yes (Other)
  Sender: FDA-Public Use
  Company Number: US-AMGEN-USASP2011013531

PATIENT
  Sex: Female
  Weight: 57 kg

DRUGS (3)
  1. CYTOXAN [Concomitant]
     Dosage: 936 MG, UNK
     Dates: start: 20110215
  2. TAXOTERE [Concomitant]
     Dosage: 117 MG, UNK
     Dates: start: 20110215
  3. NEULASTA [Suspect]
     Indication: NEUTROPENIA
     Dosage: 6 MG, Q3WK
     Route: 058
     Dates: start: 20110217

REACTIONS (3)
  - TONGUE DISORDER [None]
  - SWOLLEN TONGUE [None]
  - PYREXIA [None]
